FAERS Safety Report 5844728-5 (Version None)
Quarter: 2008Q3

REPORT INFORMATION
  Report Type: 
  Country: None (occurrence: None)
  Receive Date: 20080814
  Receipt Date: 20080805
  Transmission Date: 20090109
  Serious: Yes (Other)
  Sender: FDA-Public Use
  Company Number: GB-JNJFOC-20080802481

PATIENT
  Age: 8 Year
  Sex: Male

DRUGS (3)
  1. PARACETAMOL [Suspect]
     Route: 054
  2. PARACETAMOL [Suspect]
     Indication: DRUG USE FOR UNKNOWN INDICATION
     Dosage: ALLEGED MAXIMUM DOSE 115 MG/KG/DAY
     Route: 054
  3. UNSPECIFIED ANESTHESIA [Concomitant]

REACTIONS (2)
  - HEPATOTOXICITY [None]
  - OVERDOSE [None]
